FAERS Safety Report 5366737-5 (Version None)
Quarter: 2007Q2

REPORT INFORMATION
  Report Type: 
  Country: None (occurrence: None)
  Receive Date: 20070622
  Receipt Date: 20060801
  Transmission Date: 20071010
  Serious: No
  Sender: FDA-Public Use
  Company Number: US-ASTRAZENECA-2006UW15434

PATIENT
  Age: 40 Year
  Sex: Female
  Weight: 95.3 kg

DRUGS (4)
  1. RHINOCORT [Suspect]
     Indication: NASAL CONGESTION
     Dosage: 32 MCG 120 METER SPRAY/UNIT ONE SPRAY QD
     Route: 045
     Dates: start: 20060621
  2. RHINOCORT [Suspect]
     Dosage: 32 MCG 120 METER SPRAY/UNIT ONE SPRAY QD
     Route: 045
     Dates: start: 20060621
  3. CHOLRETRIMATRON [Concomitant]
  4. SUDAFED 12 HOUR [Concomitant]

REACTIONS (2)
  - DRUG EXPOSURE DURING PREGNANCY [None]
  - DRUG INEFFECTIVE [None]
